FAERS Safety Report 7627794-6 (Version None)
Quarter: 2011Q3

REPORT INFORMATION
  Report Type: 
  Country: None (occurrence: None)
  Receive Date: 20110721
  Receipt Date: 20110712
  Transmission Date: 20111222
  Serious: Yes (Hospitalization)
  Sender: FDA-Public Use
  Company Number: US-ASTRAZENECA-2011SE41901

PATIENT
  Age: 78 Year
  Sex: Male
  Weight: 98 kg

DRUGS (22)
  1. PLACEBO [Suspect]
     Indication: THROMBOSIS PROPHYLAXIS
     Route: 065
     Dates: start: 20071219
  2. RANEXA [Concomitant]
     Dates: start: 20100714
  3. METOPROLOL TARTRATE [Suspect]
     Route: 048
     Dates: start: 20081209, end: 20091207
  4. ASPIRIN [Concomitant]
     Dates: start: 20050615
  5. LASIX [Concomitant]
     Dates: start: 20090305, end: 20101025
  6. CLOPIDOGREL [Concomitant]
     Dates: start: 20020115
  7. ATORVASTATIN [Concomitant]
     Dates: start: 20100319
  8. LANOXIN [Concomitant]
     Dates: start: 20070315
  9. SINGULAIR [Concomitant]
     Dates: start: 20060715
  10. NITROGLYCERIN [Concomitant]
     Dates: start: 20080521
  11. LISINOPRIL [Suspect]
     Route: 048
     Dates: start: 20080902, end: 20091214
  12. ZETIA [Concomitant]
     Dates: start: 20100319
  13. COSOPT [Concomitant]
     Dates: start: 19970115, end: 20110520
  14. AMIODARONE HCL [Concomitant]
     Dates: start: 20091222
  15. TOPROL-XL [Suspect]
     Route: 048
     Dates: start: 20100707
  16. IMDUR [Concomitant]
     Route: 048
     Dates: start: 20100714
  17. FLOMAX [Concomitant]
     Dates: start: 20081206
  18. RANITIDINE [Concomitant]
     Dates: start: 20100714
  19. VYTORIN [Concomitant]
     Dates: start: 20051206, end: 20100318
  20. CITRUS BIOFLAVONOIDS [Concomitant]
     Dates: start: 20080606
  21. SPIRONOLACTONE [Concomitant]
     Dates: start: 20080902
  22. ISOSORBIDE MONOTRATE [Concomitant]
     Dates: start: 20081209, end: 20091110

REACTIONS (4)
  - CHEST PAIN [None]
  - GASTRITIS [None]
  - NON-CARDIAC CHEST PAIN [None]
  - PAIN [None]
